FAERS Safety Report 8120256-1 (Version None)
Quarter: 2012Q1

REPORT INFORMATION
  Report Type: 
  Country: None (occurrence: None)
  Receive Date: 20120207
  Receipt Date: 20120130
  Transmission Date: 20120608
  Serious: Yes (Other)
  Sender: FDA-Public Use
  Company Number: PHEH2012US002644

PATIENT
  Sex: Female

DRUGS (4)
  1. DOXAZOSIN MESYLATE [Concomitant]
     Dosage: 4 MG, UNK
  2. BENICAR [Concomitant]
     Dosage: 40 MG, UNK
  3. TEKTURNA [Suspect]
     Dosage: 150 MG, QD
  4. METOPROLOL TARTRATE [Concomitant]
     Dosage: 100 MG, UNK

REACTIONS (2)
  - MEMORY IMPAIRMENT [None]
  - RENAL FAILURE [None]
